FAERS Safety Report 17253042 (Version 1)
Quarter: 2020Q1

REPORT INFORMATION
  Report Type: Spontaneous
  Country: US (occurrence: US)
  Receive Date: 20200109
  Receipt Date: 20200109
  Transmission Date: 20200409
  Serious: No
  Sender: FDA-Public Use
  Company Number: US-ASTRAZENECA-2019SF79359

PATIENT
  Age: 75 Year
  Sex: Male

DRUGS (15)
  1. CARVEDILOL. [Concomitant]
     Active Substance: CARVEDILOL
  2. ENOXAPARIN [Concomitant]
     Active Substance: ENOXAPARIN
  3. GAS-X [Concomitant]
     Active Substance: DIMETHICONE
  4. LIDOCAINE. [Concomitant]
     Active Substance: LIDOCAINE
  5. PHENOBARBITAL. [Concomitant]
     Active Substance: PHENOBARBITAL
  6. ATORVASTATIN [Concomitant]
     Active Substance: ATORVASTATIN
  7. PHENYTOIN. [Concomitant]
     Active Substance: PHENYTOIN
  8. IMODIUM [Concomitant]
     Active Substance: LOPERAMIDE HYDROCHLORIDE
  9. TAGRISSO [Suspect]
     Active Substance: OSIMERTINIB
     Indication: PRODUCT USED FOR UNKNOWN INDICATION
     Dosage: UNKNOWN
     Route: 048
     Dates: start: 20180706
  10. GILOTRIF [Suspect]
     Active Substance: AFATINIB
     Dosage: 40.0MG UNKNOWN
     Route: 048
     Dates: start: 20180706, end: 201903
  11. CLOPIDOGREL [Concomitant]
     Active Substance: CLOPIDOGREL BISULFATE
  12. TAGRISSO [Suspect]
     Active Substance: OSIMERTINIB
     Indication: NON-SMALL CELL LUNG CANCER
     Dosage: UNKNOWN
     Route: 048
     Dates: start: 20180706
  13. INCRUSE ELLIPTA [Concomitant]
     Active Substance: UMECLIDINIUM BROMIDE
  14. PROAIR HFA [Concomitant]
     Active Substance: ALBUTEROL SULFATE
  15. ASPIRIN. [Concomitant]
     Active Substance: ASPIRIN

REACTIONS (14)
  - Haematuria [Not Recovered/Not Resolved]
  - Cataract [Unknown]
  - Nail disorder [Not Recovered/Not Resolved]
  - Skin disorder [Not Recovered/Not Resolved]
  - Ingrowing nail [Unknown]
  - Productive cough [Recovering/Resolving]
  - Tenderness [Recovering/Resolving]
  - Hyperkeratosis [Recovering/Resolving]
  - Diarrhoea [Unknown]
  - Constipation [Not Recovered/Not Resolved]
  - Urine flow decreased [Not Recovered/Not Resolved]
  - Blood iron decreased [Unknown]
  - Flatulence [Not Recovered/Not Resolved]
  - Frequent bowel movements [Unknown]

NARRATIVE: CASE EVENT DATE: 20190309
